FAERS Safety Report 10255345 (Version 1)
Quarter: 2014Q2

REPORT INFORMATION
  Report Type: Spontaneous
  Country: US (occurrence: US)
  Receive Date: 20140624
  Receipt Date: 20140624
  Transmission Date: 20141212
  Serious: No
  Sender: FDA-Public Use
  Company Number: US-PFIZER INC-2014170437

PATIENT
  Age: 59 Year
  Sex: Female

DRUGS (12)
  1. SOMAVERT [Suspect]
     Indication: ACROMEGALY
     Dosage: 15 MG, DAILY
     Route: 058
  2. CELEBREX [Concomitant]
     Dosage: 100 MG, UNK
  3. DESMOPRESSIN ACETATE [Concomitant]
     Dosage: 0.2 MG, UNK
  4. ECOTRIN [Concomitant]
     Dosage: 325 MG, UNK
  5. FEMHRT [Concomitant]
     Dosage: UNK (1 MG-5 MC)
  6. FLUDROCORTISONE ACETATE [Concomitant]
     Dosage: UNK
  7. GLUCOSAMINE CHONDROITIN PM [Concomitant]
     Dosage: UNK (500-400)
  8. L-THYROXINE SODIUM [Concomitant]
     Dosage: UNK (100%)
  9. MUCINEX [Concomitant]
     Dosage: 600 MG, UNK
  10. NEXIUM [Concomitant]
     Dosage: 40 MG, UNK
  11. VITAMIN B COMPLEX [Concomitant]
     Dosage: UNK
  12. FISH OIL [Concomitant]
     Dosage: UNK (340-100)

REACTIONS (1)
  - Arthralgia [Recovering/Resolving]
